FAERS Safety Report 4748801-4 (Version None)
Quarter: 2005Q3

REPORT INFORMATION
  Report Type: 
  Country: None (occurrence: None)
  Receive Date: 20050812
  Receipt Date: 20050701
  Transmission Date: 20060218
  Serious: Yes (Hospitalization)
  Sender: FDA-Public Use
  Company Number: 409893

PATIENT
  Age: 49 Year
  Sex: Male

DRUGS (4)
  1. PEGASYS [Suspect]
     Indication: HEPATITIS C VIRUS
     Dosage: 180 MCG OTHER
     Route: 050
     Dates: start: 20050315, end: 20050615
  2. COPEGUS [Suspect]
     Indication: HEPATITIS C VIRUS
     Dosage: 600 MG 2 PER 1 DAY ORAL
     Route: 048
     Dates: start: 20050315, end: 20050615
  3. ZOLOFT [Concomitant]
  4. METHADONE HCL [Concomitant]

REACTIONS (1)
  - PNEUMONITIS [None]
